FAERS Safety Report 25534654 (Version 1)
Quarter: 2025Q3

REPORT INFORMATION
  Report Type: Spontaneous
  Country: US (occurrence: None)
  Receive Date: 20250709
  Receipt Date: 20250709
  Transmission Date: 20251021
  Serious: Yes (Death, Hospitalization)
  Sender: FDA-CTU
  Company Number: None

PATIENT
  Age: 41 Year
  Sex: Female
  Weight: 103 kg

DRUGS (4)
  1. CARBOPLATIN [Suspect]
     Active Substance: CARBOPLATIN
  2. TAXOTERE [Suspect]
     Active Substance: DOCETAXEL
  3. PEMBROLIZUMAB [Suspect]
     Active Substance: PEMBROLIZUMAB
  4. KEYTRUDA [Suspect]
     Active Substance: PEMBROLIZUMAB

REACTIONS (21)
  - Ventricular tachycardia [None]
  - Myocarditis [None]
  - Pyrexia [None]
  - Bundle branch block right [None]
  - Extrasystoles [None]
  - Ventricular extrasystoles [None]
  - Electrocardiogram ST segment elevation [None]
  - Blood sodium decreased [None]
  - Hypotension [None]
  - Ejection fraction decreased [None]
  - Left ventricular dysfunction [None]
  - Viral myocarditis [None]
  - Bacterial infection [None]
  - Loss of consciousness [None]
  - Cardiac arrest [None]
  - Tachycardia [None]
  - Chest discomfort [None]
  - Pain [None]
  - Troponin increased [None]
  - Orthopnoea [None]
  - Malaise [None]

NARRATIVE: CASE EVENT DATE: 20250706
